FAERS Safety Report 4422001-X (Version None)
Quarter: 2004Q3

REPORT INFORMATION
  Report Type: 
  Country: None (occurrence: None)
  Receive Date: 20040709
  Receipt Date: 20040202
  Transmission Date: 20050211
  Serious: Yes (Other)
  Sender: FDA-Public Use
  Company Number: US-SHR-04-020536

PATIENT
  Sex: Male

DRUGS (1)
  1. ULTRAVIST 370 [Suspect]
     Dosage: 1 DOSE
     Dates: start: 20040108, end: 20040108

REACTIONS (1)
  - OROPHARYNGEAL SWELLING [None]
